FAERS Safety Report 25083134 (Version 1)
Quarter: 2025Q1

REPORT INFORMATION
  Report Type: Spontaneous
  Country: FR (occurrence: FR)
  Receive Date: 20250317
  Receipt Date: 20250317
  Transmission Date: 20250409
  Serious: Yes (Congenital Anomaly, Other)
  Sender: BIOVITRUM
  Company Number: FR-BIOVITRUM-2025-FR-001614

PATIENT

DRUGS (1)
  1. KINERET [Suspect]
     Active Substance: ANAKINRA
     Indication: Product used for unknown indication

REACTIONS (1)
  - Anorectal malformation [Unknown]
